FAERS Safety Report 22216561 (Version 1)
Quarter: 2023Q2

REPORT INFORMATION
  Report Type: Spontaneous
  Country: GB (occurrence: GB)
  Receive Date: 20230417
  Receipt Date: 20230417
  Transmission Date: 20230721
  Serious: Yes (Other)
  Sender: FDA-Public Use
  Company Number: GB-ABBVIE-4729399

PATIENT
  Sex: Female

DRUGS (2)
  1. DEPAKOTE [Suspect]
     Active Substance: DIVALPROEX SODIUM
     Indication: Product used for unknown indication
     Route: 048
  2. VALPROATE SODIUM [Suspect]
     Active Substance: VALPROATE SODIUM
     Indication: Product used for unknown indication
     Dosage: SODIUM VALPROATE WOCKHARDT (VALPROATE SODIUM), 10 ML LIQUID
     Route: 048

REACTIONS (6)
  - Gastric bypass [Unknown]
  - Illness [Unknown]
  - Nausea [Unknown]
  - Anosmia [Unknown]
  - Asthenia [Unknown]
  - Abdominal pain upper [Unknown]
